FAERS Safety Report 14704818 (Version 1)
Quarter: 2018Q2

REPORT INFORMATION
  Report Type: Report from Study
  Country: BE (occurrence: BE)
  Receive Date: 20180402
  Receipt Date: 20180402
  Transmission Date: 20180711
  Serious: Yes (Hospitalization)
  Sender: FDA-Public Use
  Company Number: BE-IPSEN BIOPHARMACEUTICALS, INC.-2018-04473

PATIENT

DRUGS (1)
  1. SOMATULINE AUTOGEL INJECTABLE 120MG [Suspect]
     Active Substance: LANREOTIDE ACETATE
     Indication: NEUROENDOCRINE TUMOUR
     Dosage: 120 MG
     Route: 058
     Dates: start: 20170209

REACTIONS (2)
  - Gastrointestinal neoplasm [Recovering/Resolving]
  - Inappropriate schedule of drug administration [Unknown]
